FAERS Safety Report 8334377-1 (Version None)
Quarter: 2012Q2

REPORT INFORMATION
  Report Type: 
  Country: None (occurrence: None)
  Receive Date: 20120503
  Receipt Date: 20120423
  Transmission Date: 20120825
  Serious: Yes (Hospitalization)
  Sender: FDA-Public Use
  Company Number: US-ELI_LILLY_AND_COMPANY-US201204009284

PATIENT
  Age: 60 Year
  Sex: Male

DRUGS (5)
  1. ASPIRIN [Concomitant]
     Dosage: 81 MG, QD
  2. INSULIN [Concomitant]
  3. GABAPENTIN [Concomitant]
     Dosage: 300 MG, QD
  4. EFFIENT [Suspect]
     Dosage: 10 MG, UNKNOWN
     Dates: start: 20111201, end: 20120301
  5. SIMVASTATIN [Concomitant]
     Dosage: 40 MG, QD

REACTIONS (2)
  - THROMBOSIS IN DEVICE [None]
  - DRUG INEFFECTIVE [None]
